FAERS Safety Report 4456743-7 (Version None)
Quarter: 2004Q3

REPORT INFORMATION
  Report Type: 
  Country: None (occurrence: None)
  Receive Date: 20040917
  Receipt Date: 20040909
  Transmission Date: 20050211
  Serious: Yes (Death)
  Sender: FDA-Public Use
  Company Number: K200401374

PATIENT
  Sex: Female

DRUGS (1)
  1. SKELAXIN [Suspect]
     Indication: MUSCULOSKELETAL PAIN
     Dosage: ORAL
     Route: 048

REACTIONS (2)
  - DRUG LEVEL ABOVE THERAPEUTIC [None]
  - DRUG TOXICITY [None]
